FAERS Safety Report 5395524-7 (Version None)
Quarter: 2007Q3

REPORT INFORMATION
  Report Type: 
  Country: None (occurrence: None)
  Receive Date: 20070724
  Receipt Date: 20070712
  Transmission Date: 20080115
  Serious: Yes (Other)
  Sender: FDA-Public Use
  Company Number: CI-GILEAD-2007-0012414

PATIENT
  Age: 20 Year
  Sex: Female
  Weight: 66 kg

DRUGS (7)
  1. EMTRICITABINE/TENOFOVIR DISOPROXIL FUMARATE [Suspect]
     Indication: HUMAN IMMUNODEFICIENCY VIRUS TRANSMISSION
     Dates: start: 20070517, end: 20070517
  2. EMTRICITABINE/TENOFOVIR DISOPROXIL FUMARATE [Suspect]
     Dates: start: 20070518, end: 20070524
  3. ZIDOVUDINE [Suspect]
     Indication: HUMAN IMMUNODEFICIENCY VIRUS TRANSMISSION
     Dates: start: 20070214, end: 20070517
  4. COTRIM [Suspect]
     Indication: OPPORTUNISTIC INFECTION PROPHYLAXIS
     Dates: start: 20070214, end: 20070517
  5. NEVIRAPINE [Concomitant]
     Indication: HUMAN IMMUNODEFICIENCY VIRUS TRANSMISSION
     Dates: start: 20070517, end: 20070517
  6. AMOXICILLIN [Concomitant]
     Indication: INFECTION PROPHYLAXIS
     Dates: start: 20070518, end: 20070524
  7. IRON AND FOLIC ACID [Concomitant]
     Indication: ANAEMIA PROPHYLAXIS
     Dates: end: 20070524

REACTIONS (3)
  - LEUKOPENIA [None]
  - NEUTROPENIA [None]
  - PREGNANCY [None]
